FAERS Safety Report 6727276-X (Version None)
Quarter: 2010Q2

REPORT INFORMATION
  Report Type: 
  Country: None (occurrence: None)
  Receive Date: 20100517
  Receipt Date: 20100507
  Transmission Date: 20101027
  Serious: Yes (Other)
  Sender: FDA-Public Use
  Company Number: US-JNJFOC-20100503383

PATIENT
  Age: 58 Year
  Sex: Female

DRUGS (7)
  1. ARESTIN [Suspect]
     Indication: GINGIVAL RECESSION
     Route: 048
  2. PENICILLIN [Concomitant]
     Indication: INFECTION PROPHYLAXIS
     Route: 048
  3. DILANTIN [Concomitant]
     Route: 065
  4. FOSAMAX [Concomitant]
     Route: 065
  5. ASPIRIN [Concomitant]
     Indication: CARDIOVASCULAR EVENT PROPHYLAXIS
     Route: 065
  6. CALCIUM [Concomitant]
     Route: 065
  7. PHENOBARBITAL [Concomitant]
     Route: 065

REACTIONS (1)
  - THROMBOSIS [None]
